FAERS Safety Report 23794948 (Version 5)
Quarter: 2024Q3

REPORT INFORMATION
  Report Type: Spontaneous
  Country: US (occurrence: US)
  Receive Date: 20240429
  Receipt Date: 20240911
  Transmission Date: 20241016
  Serious: No
  Sender: PFIZER
  Company Number: US-PFIZER INC-202400092871

PATIENT
  Age: 15 Year
  Sex: Male
  Weight: 68.49 kg

DRUGS (2)
  1. GENOTROPIN [Suspect]
     Active Substance: SOMATROPIN
     Indication: Growth disorder
     Dosage: 2.2MG ALTERNATING WITH 2.4MG DAILY/2.3 EVERY NIGHT
     Dates: start: 202209, end: 20240420
  2. GENOTROPIN [Suspect]
     Active Substance: SOMATROPIN
     Dosage: 2.2MG ALTERNATING WITH 2.4MG DAILY/2.3 EVERY NIGHT
     Dates: start: 202209, end: 20240420

REACTIONS (3)
  - Drug dose omission by device [Unknown]
  - Device physical property issue [Unknown]
  - Device malfunction [Unknown]

NARRATIVE: CASE EVENT DATE: 20240421
